FAERS Safety Report 6903795-8 (Version None)
Quarter: 2010Q3

REPORT INFORMATION
  Report Type: 
  Country: None (occurrence: None)
  Receive Date: 20100804
  Receipt Date: 20090105
  Transmission Date: 20110219
  Serious: No
  Sender: FDA-Public Use
  Company Number: US-PFIZER INC-2009152377

PATIENT
  Sex: Female
  Weight: 63.5 kg

DRUGS (1)
  1. LYRICA [Suspect]
     Indication: NEURALGIA
     Dosage: 75 MG, 1X/DAY
     Dates: start: 20080901, end: 20080101

REACTIONS (3)
  - CONFUSIONAL STATE [None]
  - DEPRESSION [None]
  - DRUG INEFFECTIVE [None]
